FAERS Safety Report 16083490 (Version 1)
Quarter: 2019Q1

REPORT INFORMATION
  Report Type: Spontaneous
  Country: RS (occurrence: RS)
  Receive Date: 20190318
  Receipt Date: 20190318
  Transmission Date: 20190418
  Serious: Yes (Death)
  Sender: FDA-Public Use
  Company Number: RS-B.I. PHARMACEUTICALS,INC./RIDGEFIELD-2019-BI-011603

PATIENT
  Sex: Male

DRUGS (2)
  1. PRAXBIND [Suspect]
     Active Substance: IDARUCIZUMAB
     Indication: SURGERY
  2. PRAXBIND [Suspect]
     Active Substance: IDARUCIZUMAB
     Indication: HAEMORRHAGE
     Route: 065
     Dates: start: 20190313

REACTIONS (1)
  - Haemorrhage [Fatal]
